FAERS Safety Report 4408561-3 (Version None)
Quarter: 2004Q3

REPORT INFORMATION
  Report Type: 
  Country: None (occurrence: None)
  Receive Date: 20040726
  Receipt Date: 20040514
  Transmission Date: 20050211
  Serious: Yes (Hospitalization)
  Sender: FDA-Public Use
  Company Number: 2004UW09339

PATIENT
  Age: 60 Year
  Sex: Male

DRUGS (5)
  1. CRESTOR [Suspect]
     Dosage: 10 MG QD PO
     Dates: start: 20031203, end: 20040429
  2. NEURONTIN [Suspect]
     Dosage: 300 MG
  3. PLAVIX [Concomitant]
  4. ASPIRIN [Concomitant]
  5. BETA BLOCKER [Concomitant]

REACTIONS (1)
  - RHABDOMYOLYSIS [None]
